FAERS Safety Report 10310070 (Version 3)
Quarter: 2015Q1

REPORT INFORMATION
  Report Type: Report from Study
  Country: DE (occurrence: DE)
  Receive Date: 20140717
  Receipt Date: 20150127
  Transmission Date: 20150720
  Serious: Yes (Hospitalization, Other)
  Sender: FDA-Public Use
  Company Number: PHHY2014DE085272

PATIENT
  Age: 64 Year
  Sex: Male
  Weight: 66 kg

DRUGS (4)
  1. CARMEN [Concomitant]
     Active Substance: LERCANIDIPINE
     Indication: PRODUCT USED FOR UNKNOWN INDICATION
     Dosage: 10 MG, UNK
     Route: 065
  2. CARMEN [Concomitant]
     Active Substance: LERCANIDIPINE
     Dosage: 20 MG, UNK
     Route: 065
  3. GLYCOPYRRONIUM BROMIDE [Suspect]
     Active Substance: GLYCOPYRRONIUM
     Indication: CHRONIC OBSTRUCTIVE PULMONARY DISEASE
     Dosage: 44 UG, QD
     Route: 055
     Dates: start: 20130103, end: 20140115
  4. ULTIBRO BREEZHALER [Suspect]
     Active Substance: GLYCOPYRRONIUM\INDACATEROL
     Indication: CHRONIC OBSTRUCTIVE PULMONARY DISEASE
     Dosage: 1 DF, QD
     Route: 055
     Dates: start: 20140116

REACTIONS (5)
  - Dyspnoea [Unknown]
  - General physical health deterioration [Recovering/Resolving]
  - Cough [Recovering/Resolving]
  - Dyspnoea exertional [Recovering/Resolving]
  - Infective exacerbation of chronic obstructive airways disease [Recovering/Resolving]

NARRATIVE: CASE EVENT DATE: 20140115
